FAERS Safety Report 5812202-8 (Version None)
Quarter: 2008Q3

REPORT INFORMATION
  Report Type: 
  Country: None (occurrence: None)
  Receive Date: 20080716
  Receipt Date: 20080711
  Transmission Date: 20090109
  Serious: Yes (Hospitalization)
  Sender: FDA-Public Use
  Company Number: US-GENENTECH-262988

PATIENT
  Sex: Female
  Weight: 32.653 kg

DRUGS (6)
  1. BEVACIZUMAB [Suspect]
     Indication: OESOPHAGEAL CARCINOMA
     Dosage: 15 MG/KG, UNK
     Route: 042
     Dates: start: 20080505
  2. ERLOTINIB [Suspect]
     Indication: OESOPHAGEAL CARCINOMA
     Dosage: 100 MG, QD
     Route: 048
     Dates: start: 20080505
  3. PACLITAXEL [Concomitant]
     Indication: OESOPHAGEAL CARCINOMA
     Dosage: 200 MG/M2, UNK
     Route: 042
     Dates: start: 20080505
  4. CARBOPLATIN [Concomitant]
     Indication: OESOPHAGEAL CARCINOMA
     Dosage: UNK, UNK
     Route: 042
     Dates: start: 20080505
  5. FLUOROURACIL [Concomitant]
     Indication: OESOPHAGEAL CARCINOMA
     Dosage: 225 MG/M2, QD FOR D1-35
     Route: 042
     Dates: start: 20080505
  6. RADIATION THERAPY [Concomitant]
     Indication: OESOPHAGEAL CARCINOMA
     Dates: start: 20080505

REACTIONS (3)
  - DEHYDRATION [None]
  - FAILURE TO THRIVE [None]
  - OESOPHAGITIS [None]
